FAERS Safety Report 21591702 (Version 2)
Quarter: 2022Q4

REPORT INFORMATION
  Report Type: Report from Study
  Country: US (occurrence: US)
  Receive Date: 20221114
  Receipt Date: 20221115
  Transmission Date: 20230113
  Serious: No
  Sender: FDA-Public Use
  Company Number: US-ABBVIE-22K-163-4521362-00

PATIENT
  Sex: Female

DRUGS (1)
  1. RINVOQ [Suspect]
     Active Substance: UPADACITINIB
     Indication: Product used for unknown indication
     Route: 048

REACTIONS (9)
  - Fatigue [Recovering/Resolving]
  - Muscle spasms [Recovering/Resolving]
  - Contusion [Recovering/Resolving]
  - Palpitations [Recovering/Resolving]
  - Decreased appetite [Recovering/Resolving]
  - Feeling abnormal [Unknown]
  - Back pain [Unknown]
  - Insomnia [Unknown]
  - Dysstasia [Unknown]
